FAERS Safety Report 4903759-X (Version None)
Quarter: 2006Q1

REPORT INFORMATION
  Report Type: 
  Country: None (occurrence: None)
  Receive Date: 20060203
  Receipt Date: 20060123
  Transmission Date: 20060701
  Serious: Yes (Hospitalization)
  Sender: FDA-Public Use
  Company Number: 2006011917

PATIENT
  Age: 62 Year
  Sex: Male
  Weight: 60 kg

DRUGS (4)
  1. SORTIS (ATORVASTATIN) [Suspect]
     Indication: MYOCARDIAL INFARCTION
     Dosage: 80MG TO 120MG (DAILY), ORAL
     Route: 048
     Dates: start: 19990101
  2. EZETROL (EZETIMIBE) [Concomitant]
  3. PIRETANIDE (PIRETANIDE) [Concomitant]
  4. ASPIRIN [Concomitant]

REACTIONS (6)
  - ASTHENIA [None]
  - BLOOD CREATINE PHOSPHOKINASE INCREASED [None]
  - FALL [None]
  - HAEMATOMA [None]
  - OEDEMA PERIPHERAL [None]
  - TENDON RUPTURE [None]
